FAERS Safety Report 10191173 (Version 1)
Quarter: 2014Q2

REPORT INFORMATION
  Report Type: Spontaneous
  Country: US (occurrence: US)
  Receive Date: 20140523
  Receipt Date: 20140523
  Transmission Date: 20141212
  Serious: No
  Sender: FDA-Public Use
  Company Number: US-BAUSCH-BL-2013-005868

PATIENT
  Age: 63 Year
  Sex: Female
  Weight: 47.67 kg

DRUGS (4)
  1. IPRATROPIUM BROMIDE NASAL SOLUTION 0.06% [Suspect]
     Indication: COUGH
     Dosage: 2 SPRAYS; RIGHT NOSTRIL; 4 TIMES DAILY
     Route: 045
     Dates: start: 20130827, end: 20130910
  2. IPRATROPIUM BROMIDE NASAL SOLUTION 0.06% [Suspect]
     Dosage: 2 SPRAYS; LEFT NOSTRIL; 4 TIMES DAILY
     Route: 045
     Dates: start: 20130827, end: 20130910
  3. PRILOSEC [Concomitant]
     Indication: GASTROOESOPHAGEAL REFLUX DISEASE
  4. CALCIUM [Concomitant]

REACTIONS (2)
  - Drug ineffective for unapproved indication [Not Recovered/Not Resolved]
  - Cough [Not Recovered/Not Resolved]
